FAERS Safety Report 6803261-4 (Version None)
Quarter: 2010Q2

REPORT INFORMATION
  Report Type: 
  Country: None (occurrence: None)
  Receive Date: 20100628
  Receipt Date: 20090615
  Transmission Date: 20101027
  Serious: No
  Sender: FDA-Public Use
  Company Number: US-ASTRAZENECA-2009UW15163

PATIENT
  Sex: Female
  Weight: 44.5 kg

DRUGS (9)
  1. ZOLADEX [Suspect]
     Route: 058
  2. CYC PHOSPHAMIDE [Concomitant]
  3. METHOTREXATE [Concomitant]
  4. RITUXIMAB [Concomitant]
  5. DOXORUBICIN [Concomitant]
  6. BACTRIM [Concomitant]
  7. PREDNISONE [Concomitant]
  8. CALCIUM CARBONATE [Concomitant]
  9. VITAMIN D [Concomitant]

REACTIONS (1)
  - BLOOD THYROID STIMULATING HORMONE INCREASED [None]
